FAERS Safety Report 4647270-2 (Version None)
Quarter: 2005Q2

REPORT INFORMATION
  Report Type: 
  Country: None (occurrence: None)
  Receive Date: 20050426
  Receipt Date: 20050416
  Transmission Date: 20051028
  Serious: Yes (Other)
  Sender: FDA-Public Use
  Company Number: 2005061111

PATIENT
  Age: 41 Year
  Sex: Male
  Weight: 81.6475 kg

DRUGS (2)
  1. BEXTRA [Suspect]
     Indication: ARTHRITIS
     Dosage: UNK (1 IN 1 D), ORAL
     Route: 048
     Dates: start: 20030101, end: 20050101
  2. VICODIN [Concomitant]

REACTIONS (9)
  - ARTHRALGIA [None]
  - ARTHROSCOPIC SURGERY [None]
  - DIZZINESS [None]
  - FALL [None]
  - HEART RATE INCREASED [None]
  - INFLAMMATION [None]
  - JOINT SWELLING [None]
  - NAUSEA [None]
  - THROMBOSIS [None]
